FAERS Safety Report 17207344 (Version 1)
Quarter: 2019Q4

REPORT INFORMATION
  Report Type: Spontaneous
  Country: NL (occurrence: NL)
  Receive Date: 20191227
  Receipt Date: 20191227
  Transmission Date: 20200122
  Serious: Yes (Hospitalization)
  Sender: FDA-Public Use
  Company Number: NL-TEVA-2019-NL-1158629

PATIENT
  Sex: Male
  Weight: 74 kg

DRUGS (2)
  1. DICLOFENAC MAAGSAPRESISTENTE TABLET, 50 MG (MILLIGRAM) [Suspect]
     Active Substance: DICLOFENAC SODIUM
     Indication: ARTHRALGIA
     Dosage: 50 MG, 8 HOURS,3 X DAILY
     Route: 065
     Dates: start: 201906, end: 20190808
  2. PARACETEMOL [Concomitant]

REACTIONS (1)
  - Gastrointestinal perforation [Recovered/Resolved]
